FAERS Safety Report 17866374 (Version 10)
Quarter: 2020Q4

REPORT INFORMATION
  Report Type: Report from Study
  Country: US (occurrence: US)
  Receive Date: 20200605
  Receipt Date: 20201224
  Transmission Date: 20210113
  Serious: Yes (Hospitalization, Other)
  Sender: FDA-Public Use
  Company Number: NVSC2020US156672

PATIENT
  Age: 36 Year
  Sex: Female

DRUGS (1)
  1. COSENTYX [Suspect]
     Active Substance: SECUKINUMAB
     Indication: ANKYLOSING SPONDYLITIS
     Dosage: UNK, UNKNOWN
     Route: 058

REACTIONS (7)
  - Vomiting [Unknown]
  - Drug ineffective [Unknown]
  - Incorrect dose administered [Unknown]
  - Pain [Unknown]
  - Injection site haemorrhage [Unknown]
  - Gastritis [Unknown]
  - Product dose omission issue [Unknown]
